FAERS Safety Report 7986511-0 (Version None)
Quarter: 2011Q4

REPORT INFORMATION
  Report Type: 
  Country: None (occurrence: None)
  Receive Date: 20111216
  Receipt Date: 20110202
  Transmission Date: 20120403
  Serious: No
  Sender: FDA-Public Use
  Company Number: US-BRISTOL-MYERS SQUIBB COMPANY-15527633

PATIENT
  Age: 56 Year
  Sex: Female

DRUGS (1)
  1. ABILIFY [Suspect]
     Dosage: AFTER 1 WEEK PATIENT STARTED ON HALF DOSE OF ABILIFY
     Dates: start: 20101013

REACTIONS (1)
  - DYSKINESIA OESOPHAGEAL [None]
